FAERS Safety Report 5420890-3 (Version None)
Quarter: 2007Q3

REPORT INFORMATION
  Report Type: 
  Country: None (occurrence: None)
  Receive Date: 20070821
  Receipt Date: 20070813
  Transmission Date: 20080115
  Serious: Yes (Hospitalization)
  Sender: FDA-Public Use
  Company Number: FR-ASTRAZENECA-2007CG01188

PATIENT
  Age: 12492 Day
  Sex: Female

DRUGS (4)
  1. DIPRIVAN [Suspect]
     Indication: GENERAL ANAESTHESIA
     Route: 042
     Dates: start: 20070529, end: 20070529
  2. SEVOFLURANE [Suspect]
     Indication: GENERAL ANAESTHESIA
     Route: 042
     Dates: start: 20070529, end: 20070529
  3. MIDAZOLAM HCL [Suspect]
     Indication: GENERAL ANAESTHESIA
     Route: 042
     Dates: start: 20070529, end: 20070529
  4. SUFENTA [Suspect]
     Indication: GENERAL ANAESTHESIA
     Route: 042
     Dates: start: 20070529, end: 20070529

REACTIONS (1)
  - MYOCARDITIS [None]
